FAERS Safety Report 7788500-8 (Version None)
Quarter: 2011Q3

REPORT INFORMATION
  Report Type: 
  Country: None (occurrence: None)
  Receive Date: 20110930
  Receipt Date: 20110919
  Transmission Date: 20111222
  Serious: No
  Sender: FDA-Public Use
  Company Number: PHHY2011CN84276

PATIENT
  Age: 32 Year
  Sex: Female

DRUGS (3)
  1. PREDNISONE [Concomitant]
     Dosage: 15 MG, UNK
     Route: 048
  2. FLUVASTATIN SODIUM [Suspect]
     Indication: NEPHROTIC SYNDROME
     Dosage: 1 DF, QD
     Route: 048
     Dates: start: 20110530
  3. DIPYRIDAMOLE [Concomitant]
     Dosage: 25 MG, TID
     Route: 048

REACTIONS (2)
  - ABDOMINAL DISTENSION [None]
  - GENERALISED OEDEMA [None]
